FAERS Safety Report 22271511 (Version 1)
Quarter: 2023Q2

REPORT INFORMATION
  Report Type: Spontaneous
  Country: JP (occurrence: JP)
  Receive Date: 20230501
  Receipt Date: 20230501
  Transmission Date: 20230721
  Serious: Yes (Other)
  Sender: FDA-Public Use
  Company Number: JP-SAKK-01554277

PATIENT
  Sex: Female

DRUGS (2)
  1. DUPIXENT [Suspect]
     Active Substance: DUPILUMAB
     Indication: Chronic rhinosinusitis with nasal polyps
     Dosage: UNK, QOW
     Route: 058
  2. DUPIXENT [Suspect]
     Active Substance: DUPILUMAB
     Indication: Asthma
     Dosage: UNK, Q3W
     Route: 058

REACTIONS (11)
  - Eosinophilic otitis media [Unknown]
  - Hypoaesthesia [Unknown]
  - Gait disturbance [Unknown]
  - Pruritus [Unknown]
  - Otitis media [Unknown]
  - Hypoacusis [Unknown]
  - Sciatica [Unknown]
  - Nasal pruritus [Unknown]
  - Eye pruritus [Unknown]
  - Therapeutic response decreased [Unknown]
  - Inappropriate schedule of product administration [Unknown]

NARRATIVE: CASE EVENT DATE: 20220101
